FAERS Safety Report 11986353 (Version 1)
Quarter: 2016Q1

REPORT INFORMATION
  Report Type: Spontaneous
  Country: US (occurrence: None)
  Receive Date: 20160201
  Receipt Date: 20160201
  Transmission Date: 20160526
  Serious: Yes (Life-Threatening, Hospitalization)
  Sender: FDA-Public Use
  Company Number: None

PATIENT
  Age: 52 Year
  Sex: Male
  Weight: 100.7 kg

DRUGS (12)
  1. AZITHROMYCIN ANHYDROUS. [Concomitant]
     Active Substance: AZITHROMYCIN ANHYDROUS
  2. HUMALOG SLIDING SCALE [Concomitant]
  3. NIVOLUMAB 100MG/10ML BMS [Suspect]
     Active Substance: NIVOLUMAB
     Indication: HODGKIN^S DISEASE
     Route: 042
     Dates: start: 20160106, end: 20160106
  4. CA+D [Concomitant]
  5. BENADRYL [Concomitant]
     Active Substance: DIPHENHYDRAMINE HYDROCHLORIDE
  6. GABAPENTIN. [Concomitant]
     Active Substance: GABAPENTIN
  7. MAG OX [Concomitant]
     Active Substance: MAGNESIUM OXIDE
  8. PRILOSEC [Concomitant]
     Active Substance: OMEPRAZOLE MAGNESIUM
  9. PREDNISONE. [Concomitant]
     Active Substance: PREDNISONE
  10. MOMETASONE [Concomitant]
     Active Substance: MOMETASONE
  11. ACETAMINOPHEN. [Concomitant]
     Active Substance: ACETAMINOPHEN
  12. SINGULAIR [Concomitant]
     Active Substance: MONTELUKAST SODIUM

REACTIONS (7)
  - Overlap syndrome [None]
  - Pain [None]
  - No therapeutic response [None]
  - Liver function test increased [None]
  - Rash erythematous [None]
  - Acute graft versus host disease [None]
  - Condition aggravated [None]

NARRATIVE: CASE EVENT DATE: 20160125
